FAERS Safety Report 6803750-2 (Version None)
Quarter: 2010Q2

REPORT INFORMATION
  Report Type: 
  Country: None (occurrence: None)
  Receive Date: 20100628
  Receipt Date: 20100622
  Transmission Date: 20101027
  Serious: Yes (Hospitalization)
  Sender: FDA-Public Use
  Company Number: US-GILEAD-2010-0030016

PATIENT
  Sex: Female

DRUGS (14)
  1. LETAIRIS [Suspect]
     Indication: PULMONARY ARTERIAL HYPERTENSION
     Route: 048
  2. SOMA [Concomitant]
  3. LASIX [Concomitant]
  4. PREDNISONE [Concomitant]
  5. NEURONTIN [Concomitant]
  6. TRAZODONE HYDROCHLORIDE [Concomitant]
  7. LEVOTHYROXINE SODIUM [Concomitant]
  8. HYDROCODONE BITARTRATE AND ACETAMINOPHEN [Concomitant]
  9. ALLOPURINOL [Concomitant]
  10. ALBUTEROL [Concomitant]
  11. GLYCOPYRROL [Concomitant]
  12. VITAMIN D [Concomitant]
  13. CALCIUM CARBONATE [Concomitant]
  14. VITAMIN B-12 [Concomitant]

REACTIONS (2)
  - DEHYDRATION [None]
  - GASTROENTERITIS VIRAL [None]
